FAERS Safety Report 4394650-9 (Version None)
Quarter: 2004Q3

REPORT INFORMATION
  Report Type: 
  Country: None (occurrence: None)
  Receive Date: 20040707
  Receipt Date: 20040621
  Transmission Date: 20050211
  Serious: Yes (Hospitalization)
  Sender: FDA-Public Use
  Company Number: US-JNJFOC-20040204606

PATIENT
  Age: 56 Year
  Sex: Female

DRUGS (7)
  1. DURAGESIC [Suspect]
     Indication: PAIN
     Dosage: SEE IMAGE
     Route: 062
     Dates: start: 19990701, end: 20030101
  2. DURAGESIC [Suspect]
     Indication: PAIN
     Dosage: SEE IMAGE
     Route: 062
     Dates: start: 20030101
  3. QUESTRAN [Concomitant]
  4. DICYCLOMINE [Concomitant]
  5. PENTASA [Concomitant]
  6. PRILOSEC [Concomitant]
  7. COMPAZINE [Concomitant]

REACTIONS (15)
  - AGITATION [None]
  - APPLICATION SITE BURNING [None]
  - APPLICATION SITE PRURITUS [None]
  - APPLICATION SITE SCAR [None]
  - BURNING SENSATION [None]
  - DIARRHOEA [None]
  - DIZZINESS [None]
  - FEELING ABNORMAL [None]
  - INSOMNIA [None]
  - MEDICATION ERROR [None]
  - PAIN EXACERBATED [None]
  - PHARMACEUTICAL PRODUCT COMPLAINT [None]
  - PRURITUS [None]
  - RESTLESSNESS [None]
  - SOMNOLENCE [None]
